FAERS Safety Report 18199983 (Version 1)
Quarter: 2020Q3

REPORT INFORMATION
  Report Type: Spontaneous
  Country: CH (occurrence: CH)
  Receive Date: 20200827
  Receipt Date: 20200827
  Transmission Date: 20201103
  Serious: Yes (Life-Threatening, Hospitalization, Other)
  Sender: FDA-Public Use
  Company Number: CH-AUROBINDO-AUR-APL-2020-045322

PATIENT
  Sex: Male
  Weight: 65 kg

DRUGS (1)
  1. FOLOTYN [Suspect]
     Active Substance: PRALATREXATE
     Indication: T-CELL LYMPHOMA
     Dosage: 20 MILLIGRAM, DAILY
     Route: 042
     Dates: start: 20200805

REACTIONS (2)
  - Loss of consciousness [Unknown]
  - Sepsis [Not Recovered/Not Resolved]

NARRATIVE: CASE EVENT DATE: 20200814
